FAERS Safety Report 5333414-6 (Version None)
Quarter: 2007Q2

REPORT INFORMATION
  Report Type: 
  Country: None (occurrence: None)
  Receive Date: 20070306
  Receipt Date: 20060209
  Transmission Date: 20071010
  Serious: Yes (Other)
  Sender: FDA-Public Use
  Company Number: A03200600792

PATIENT
  Age: 72 Year
  Sex: Male
  Weight: 86.17 kg

DRUGS (2)
  1. PLAVIX [Suspect]
     Dosage: ORAL
     Route: 048
     Dates: start: 20060208
  2. ANTIHYPERTENSIVES NOS [Concomitant]

REACTIONS (2)
  - EPISTAXIS [None]
  - HAEMOPTYSIS [None]
